FAERS Safety Report 5348640-X (Version None)
Quarter: 2007Q2

REPORT INFORMATION
  Report Type: 
  Country: None (occurrence: None)
  Receive Date: 20070605
  Receipt Date: 20070530
  Transmission Date: 20071010
  Serious: Yes (Death)
  Sender: FDA-Public Use
  Company Number: 163-21880-07051580

PATIENT
  Sex: Female

DRUGS (2)
  1. REVLIMID [Suspect]
     Indication: MULTIPLE MYELOMA
     Dosage: 10 MG, 1 IN 1 D, ORAL, 15 MG, 1 IN 1 D, ORAL
     Route: 048
     Dates: start: 20060823, end: 20060901
  2. REVLIMID [Suspect]
     Indication: MULTIPLE MYELOMA
     Dosage: 10 MG, 1 IN 1 D, ORAL, 15 MG, 1 IN 1 D, ORAL
     Route: 048
     Dates: start: 20060918

REACTIONS (1)
  - DISEASE PROGRESSION [None]
